FAERS Safety Report 10709671 (Version 1)
Quarter: 2015Q1

REPORT INFORMATION
  Report Type: Spontaneous
  Country: US (occurrence: US)
  Receive Date: 20150114
  Receipt Date: 20150114
  Transmission Date: 20150721
  Serious: Yes (Life-Threatening, Hospitalization, Other)
  Sender: FDA-Public Use
  Company Number: US-JNJFOC-20150102452

PATIENT
  Age: 82 Year
  Sex: Male
  Weight: 90.27 kg

DRUGS (11)
  1. XARELTO [Suspect]
     Active Substance: RIVAROXABAN
     Indication: CEREBROVASCULAR ACCIDENT PROPHYLAXIS
     Route: 048
     Dates: start: 20140716, end: 20140728
  2. VIDARABINE [Concomitant]
     Active Substance: VIDARABINE
     Route: 042
  3. METOPROLOL [Concomitant]
     Active Substance: METOPROLOL
     Route: 048
  4. VITAMIN [Concomitant]
     Active Substance: VITAMINS
     Route: 065
  5. GLUCOSAMINE W/METHYLSULFONYLMETHANE [Concomitant]
     Route: 065
  6. XARELTO [Suspect]
     Active Substance: RIVAROXABAN
     Indication: ATRIAL FIBRILLATION
     Route: 048
     Dates: start: 20140716, end: 20140728
  7. LOSARTAN [Concomitant]
     Active Substance: LOSARTAN
     Route: 048
  8. TYLENOL [Concomitant]
     Active Substance: ACETAMINOPHEN
     Indication: PAIN
     Route: 048
  9. XARELTO [Suspect]
     Active Substance: RIVAROXABAN
     Indication: ANTICOAGULANT THERAPY
     Route: 048
     Dates: start: 20140716, end: 20140728
  10. ANAGRELIDE [Concomitant]
     Active Substance: ANAGRELIDE
     Route: 048
  11. TAMSULOSIN [Concomitant]
     Active Substance: TAMSULOSIN
     Route: 048

REACTIONS (2)
  - Hypotension [Recovered/Resolved]
  - Haemoglobin decreased [Recovered/Resolved]

NARRATIVE: CASE EVENT DATE: 20140728
